FAERS Safety Report 14349472 (Version 2)
Quarter: 2018Q3

REPORT INFORMATION
  Report Type: Spontaneous
  Country: DE (occurrence: DE)
  Receive Date: 20180104
  Receipt Date: 20180802
  Transmission Date: 20181010
  Serious: Yes (Hospitalization, Other)
  Sender: FDA-Public Use
  Company Number: DE-AUROBINDO-AUR-APL-2017-48730

PATIENT
  Age: 5 Year
  Sex: Male
  Weight: 21 kg

DRUGS (9)
  1. NAPROXEN. [Suspect]
     Active Substance: NAPROXEN
     Indication: STILL^S DISEASE
     Dosage: 250 MILLIGRAM
     Route: 048
     Dates: start: 20161110
  2. PREDNISON [Concomitant]
     Active Substance: PREDNISONE
     Indication: JUVENILE IDIOPATHIC ARTHRITIS
     Dosage: 1.25 MILLIGRAM
     Route: 048
  3. ROACTEMRA [Suspect]
     Active Substance: TOCILIZUMAB
     Indication: STILL^S DISEASE
     Dosage: DAILY DOSE: 200 MG MILLGRAM(S) EVERY 2 WEEKS
     Route: 042
     Dates: start: 20151030, end: 20160114
  4. METHOTREXATE (METHOTREXATE SODIUM) [Suspect]
     Active Substance: METHOTREXATE SODIUM
     Indication: STILL^S DISEASE
     Dosage: DAILY DOSE: 10 MG MILLGRAM(S) EVERY WEEKS
     Route: 058
     Dates: start: 20150512, end: 20151106
  5. INDOMETACIN [Concomitant]
     Active Substance: INDOMETHACIN
     Dosage: DAILY DOSE: 15 MG MILLGRAM(S) EVERY DAYS
     Route: 048
     Dates: start: 20120703
  6. IBUPROFEN. [Suspect]
     Active Substance: IBUPROFEN
     Indication: STILL^S DISEASE
     Dosage: 200 MILLIGRAM
     Route: 048
     Dates: start: 20161110
  7. PREDNISON [Concomitant]
     Active Substance: PREDNISONE
     Indication: STILL^S DISEASE
     Dosage: 10 MILLIGRAM
     Route: 048
     Dates: start: 20160125
  8. PREDNISON [Concomitant]
     Active Substance: PREDNISONE
     Dosage: DAILY DOSE: 2.5 MG MILLGRAM(S) EVERY 2 DAYS
     Route: 048
     Dates: start: 20151030
  9. INDOMETACIN [Concomitant]
     Active Substance: INDOMETHACIN
     Indication: STILL^S DISEASE
     Dosage: 200 MILLIGRAM
     Route: 048

REACTIONS (5)
  - Pleural effusion [Recovering/Resolving]
  - Pneumonia [Recovered/Resolved]
  - Intracranial pressure increased [Recovered/Resolved]
  - Headache [Recovered/Resolved]
  - Pneumonia [Not Recovered/Not Resolved]

NARRATIVE: CASE EVENT DATE: 20160124
